FAERS Safety Report 24768735 (Version 1)
Quarter: 2024Q4

REPORT INFORMATION
  Report Type: Report from Study
  Country: DZ (occurrence: DZ)
  Receive Date: 20241224
  Receipt Date: 20241224
  Transmission Date: 20250114
  Serious: Yes (Other)
  Sender: EMD SERONO INC
  Company Number: DZ-Merck Healthcare KGaA-2024066461

PATIENT
  Age: 31 Year
  Sex: Female

DRUGS (1)
  1. REBIF [Suspect]
     Active Substance: INTERFERON BETA-1A
     Indication: Multiple sclerosis
     Dates: start: 20241116

REACTIONS (3)
  - Diplegia [Not Recovered/Not Resolved]
  - Gait inability [Unknown]
  - Dysstasia [Unknown]

NARRATIVE: CASE EVENT DATE: 20241207
